FAERS Safety Report 11194181 (Version 3)
Quarter: 2015Q3

REPORT INFORMATION
  Report Type: Spontaneous
  Country: FI (occurrence: FI)
  Receive Date: 20150616
  Receipt Date: 20150827
  Transmission Date: 20151125
  Serious: Yes (Hospitalization, Other)
  Sender: FDA-Public Use
  Company Number: FI-JNJFOC-20150607379

PATIENT
  Age: 52 Year
  Sex: Female
  Weight: 96 kg

DRUGS (22)
  1. STELARA [Suspect]
     Active Substance: USTEKINUMAB
     Indication: PSORIASIS
     Route: 058
     Dates: start: 20141127, end: 20150408
  2. SANDIMMUN [Suspect]
     Active Substance: CYCLOSPORINE
     Indication: PRODUCT USED FOR UNKNOWN INDICATION
     Dosage: 2 CAPSULE + 1 CAPSULE EACH DAY
     Dates: end: 20150522
  3. PRIMASPAN [Concomitant]
     Dosage: 1 TABLET X 1, ORAL
     Route: 048
  4. PANACOD [Concomitant]
     Active Substance: ACETAMINOPHEN\CODEINE PHOSPHATE
     Dosage: 500/ 30 MG
     Route: 048
  5. CETIRIZINE [Concomitant]
     Active Substance: CETIRIZINE HYDROCHLORIDE
     Route: 048
  6. NOVORAPID [Concomitant]
     Active Substance: INSULIN ASPART
     Dosage: SEPARATE INSTRUCTIONS (BLOOG GLUCOSE-7) 2 UNITS. IF BLOOS GLUCOSE 10MMOL/L
     Route: 058
  7. HUMALOG [Concomitant]
     Active Substance: INSULIN LISPRO
     Dosage: AT WARD 15+6
     Route: 058
  8. ATARAX [Concomitant]
     Active Substance: HYDROXYZINE\HYDROXYZINE HYDROCHLORIDE
     Route: 048
  9. KEFEXIN (CEFALEXIN MONOHYDRATE) [Concomitant]
     Dosage: 1 TABLET X 1, ORAL
     Route: 048
  10. HUMALOG [Concomitant]
     Active Substance: INSULIN LISPRO
     Dosage: AT HOME 44+48
     Route: 058
  11. KLEXANE [Concomitant]
     Active Substance: ENOXAPARIN
     Route: 058
  12. KALEORID [Concomitant]
     Active Substance: POTASSIUM CHLORIDE
     Dosage: 2 TABLET X 2, ORAL
     Route: 048
  13. AMLORATIO [Concomitant]
     Dosage: 1 TABLET X 1, ORAL
     Route: 048
     Dates: end: 20150522
  14. ANTEPSIN [Concomitant]
     Active Substance: SUCRALFATE
     Route: 048
  15. DIOVAN [Concomitant]
     Active Substance: VALSARTAN
     Dosage: 80/12.5 MG, 1 TABLET X 1, ORAL
     Route: 048
     Dates: end: 20150511
  16. FURESIS [Concomitant]
     Active Substance: FUROSEMIDE
     Dosage: 1 TABLET X 1, ORAL
     Route: 048
  17. HUMALOG [Concomitant]
     Active Substance: INSULIN LISPRO
     Dosage: ACCORDING TO BLOOD GLUCOSE VALUES
     Route: 058
  18. DAIVOBET [Concomitant]
     Active Substance: BETAMETHASONE DIPROPIONATE\CALCIPOTRIENE
     Dosage: 50/500 MICROG/G, TO SKIN AREA ONCE DAILY MAXIMUM FOUR WEEKS TREATMENT
     Route: 065
  19. DIOVAN [Concomitant]
     Active Substance: VALSARTAN
     Dosage: 160/12.5 MG, 1 TABLET X 1, ORAL
     Route: 048
     Dates: end: 20141103
  20. PRIMPERAN [Concomitant]
     Active Substance: METOCLOPRAMIDE HYDROCHLORIDE
     Dosage: MAXIMUM 30 MG
     Route: 042
  21. PRECOSA [Concomitant]
     Dosage: 2 CAPSULESX 2, ORAL
     Route: 048
  22. PARA-TABS [Concomitant]
     Active Substance: ACETAMINOPHEN
     Route: 048

REACTIONS (4)
  - Urinary tract infection pseudomonal [Recovered/Resolved]
  - Tooth extraction [Unknown]
  - Skin infection [Recovered/Resolved]
  - Septic shock [Recovered/Resolved]

NARRATIVE: CASE EVENT DATE: 20150521
